FAERS Safety Report 6327532-3 (Version None)
Quarter: 2009Q3

REPORT INFORMATION
  Report Type: 
  Country: None (occurrence: None)
  Receive Date: 20090825
  Receipt Date: 20090819
  Transmission Date: 20100115
  Serious: Yes (Other)
  Sender: FDA-Public Use
  Company Number: PHHY2009DE12214

PATIENT
  Sex: Male
  Weight: 80 kg

DRUGS (1)
  1. CERTICAN [Suspect]
     Indication: HEART TRANSPLANT
     Dosage: 4 MG/DAY
     Route: 048
     Dates: start: 20081021

REACTIONS (4)
  - COLON CANCER [None]
  - IMPAIRED HEALING [None]
  - SMALL INTESTINAL RESECTION [None]
  - WOUND DEHISCENCE [None]
